FAERS Safety Report 8226328 (Version 3)
Quarter: 2013Q4

REPORT INFORMATION
  Report Type: Report from Study
  Country: CA (occurrence: CA)
  Receive Date: 20111103
  Receipt Date: 20131010
  Transmission Date: 20140711
  Serious: Yes (Death, Life-Threatening, Other)
  Sender: FDA-Public Use
  Company Number: CA-ROCHE-1008758

PATIENT
  Age: 80 Year
  Sex: Male

DRUGS (8)
  1. RANIBIZUMAB [Suspect]
     Indication: AGE-RELATED MACULAR DEGENERATION
     Route: 050
     Dates: start: 20100820
  2. RANIBIZUMAB [Suspect]
     Route: 050
     Dates: start: 20100820, end: 20120920
  3. COVERSYL [Concomitant]
     Route: 065
  4. NORVASC [Concomitant]
     Route: 065
  5. LIPITOR [Concomitant]
     Route: 065
  6. RIVASA [Concomitant]
     Route: 065
  7. EZETROL [Concomitant]
     Route: 065
  8. FEXOFENADINE HYDROCHLORIDE [Concomitant]
     Route: 065

REACTIONS (3)
  - Death [Fatal]
  - Small cell lung cancer [Not Recovered/Not Resolved]
  - Retinal cyst [Recovered/Resolved]
